FAERS Safety Report 4418735-3 (Version None)
Quarter: 2004Q3

REPORT INFORMATION
  Report Type: 
  Country: None (occurrence: None)
  Receive Date: 20040809
  Receipt Date: 20040105
  Transmission Date: 20050211
  Serious: No
  Sender: FDA-Public Use
  Company Number: US-GLAXOSMITHKLINE-A0491377A

PATIENT
  Age: 46 Year
  Sex: Female

DRUGS (6)
  1. PAXIL [Suspect]
     Indication: DEPRESSION
     Dosage: 37.5CAP TWICE PER DAY
     Route: 048
     Dates: start: 20030101
  2. PROPRANOLOL [Concomitant]
  3. NEXIUM [Concomitant]
  4. UNSPECIFIED MEDICATION [Concomitant]
  5. ZELNORM [Concomitant]
  6. MULTIVITAMIN [Concomitant]

REACTIONS (5)
  - AGITATION [None]
  - PAIN [None]
  - PARAESTHESIA [None]
  - PERFORMANCE STATUS DECREASED [None]
  - WEIGHT INCREASED [None]
